FAERS Safety Report 8481607-1 (Version None)
Quarter: 2012Q3

REPORT INFORMATION
  Report Type: 
  Country: None (occurrence: None)
  Receive Date: 20120702
  Receipt Date: 20120618
  Transmission Date: 20120928
  Serious: Yes (Life-Threatening, Other)
  Sender: FDA-Public Use
  Company Number: DE-PFIZER INC-2012153181

PATIENT
  Age: 94 Year
  Sex: Female

DRUGS (11)
  1. SEROQUEL [Suspect]
     Indication: DEMENTIA ALZHEIMER'S TYPE
     Dosage: 25 MG, DAILY
     Route: 048
     Dates: start: 20111121, end: 20111202
  2. LEVOTHYROXINE SODIUM [Concomitant]
     Indication: HYPOTHYROIDISM
     Dosage: UNK
  3. HYDROCHLOROTHIAZDE TAB [Suspect]
     Dosage: 12.5 MG, DAILY
     Route: 048
  4. SERTRALINE HYDROCHLORIDE [Suspect]
     Dosage: 50 MG, DAILY
     Route: 048
     Dates: start: 20111129, end: 20111230
  5. METOPROLOL [Concomitant]
     Dosage: UNK
  6. ACC 200 [Concomitant]
     Dosage: UNK
     Dates: start: 20111130
  7. RAMIPRIL [Suspect]
     Indication: PRODUCT USED FOR UNKNOWN INDICATION
     Dosage: 2.5 MG, DAILY
     Route: 048
  8. SOLIFENACIN SUCCINATE [Concomitant]
     Dosage: UNK
  9. SERTRALINE HYDROCHLORIDE [Suspect]
     Indication: PRODUCT USED FOR UNKNOWN INDICATION
     Dosage: 25 MG, DAILY
     Route: 048
     Dates: start: 20111126, end: 20111128
  10. PANTOPRAZOLE [Suspect]
     Indication: PRODUCT USED FOR UNKNOWN INDICATION
     Dosage: 20 MG, DAILY
     Route: 048
  11. ACETYLSALICYLIC ACID [Concomitant]
     Dosage: UNK

REACTIONS (2)
  - CONVULSION [None]
  - HYPONATRAEMIA [None]
